FAERS Safety Report 9110077 (Version 1)
Quarter: 2013Q1

REPORT INFORMATION
  Report Type: Report from Study
  Country: IT (occurrence: IT)
  Receive Date: 20130222
  Receipt Date: 20130222
  Transmission Date: 20140127
  Serious: Yes (Other)
  Sender: FDA-Public Use
  Company Number: IT-ROCHE-1190803

PATIENT
  Sex: 0

DRUGS (1)
  1. KETOROLAC [Suspect]
     Indication: ANALGESIC THERAPY
     Route: 065

REACTIONS (1)
  - Haemorrhage intracranial [Unknown]
